FAERS Safety Report 8642754 (Version 2)
Quarter: 2014Q1

REPORT INFORMATION
  Report Type: Spontaneous
  Country: US (occurrence: None)
  Receive Date: 20120323
  Receipt Date: 20130305
  Transmission Date: 20141002
  Serious: Yes (Other)
  Sender: FDA-Public Use
  Company Number: 163-21880-11092903

PATIENT
  Age: 63 Year
  Sex: Female

DRUGS (6)
  1. LENALIDOMIDE [Suspect]
     Indication: PLASMA CELL MYELOMA
     Dosage: 10 MG, DAILY X 21 Q 28D, PO
     Route: 048
     Dates: start: 201104, end: 201108
  2. AMLODIPINE BESYLATE [Concomitant]
  3. LEVOTHYROXINE SODIUM [Concomitant]
  4. GLIMEPIRIDE (GLIMEPIRIDE) [Concomitant]
  5. CRESTOR [Concomitant]
  6. VITAMIN D (ERGOCALCIFEROL) [Concomitant]

REACTIONS (1)
  - Rash generalised [None]
